FAERS Safety Report 5961718-2 (Version None)
Quarter: 2008Q4

REPORT INFORMATION
  Report Type: 
  Country: None (occurrence: None)
  Receive Date: 20081121
  Receipt Date: 20080916
  Transmission Date: 20090506
  Serious: Yes (Hospitalization, Disabling)
  Sender: FDA-Public Use
  Company Number: JP-ASTRAZENECA-2008SE04438

PATIENT
  Age: 72 Year
  Sex: Female
  Weight: 47 kg

DRUGS (9)
  1. BLOPRESS [Suspect]
     Indication: CARDIAC FAILURE CHRONIC
     Route: 048
     Dates: start: 20070612, end: 20070617
  2. BLOPRESS [Suspect]
     Route: 048
     Dates: start: 20070618, end: 20070913
  3. PANALDINE [Suspect]
     Indication: MYOCARDIAL INFARCTION
     Route: 048
     Dates: start: 20070602, end: 20070913
  4. LANSOPRAZOLE [Concomitant]
     Route: 048
     Dates: start: 20070607, end: 20070913
  5. LASIX [Concomitant]
     Indication: CARDIAC FAILURE CHRONIC
     Route: 048
     Dates: start: 20070609, end: 20070913
  6. ALDACTONE [Concomitant]
     Indication: CARDIAC FAILURE CHRONIC
     Route: 048
     Dates: start: 20070609, end: 20070623
  7. ALDACTONE [Concomitant]
     Route: 048
     Dates: start: 20070624, end: 20070913
  8. ASPIRIN [Concomitant]
     Indication: MYOCARDIAL INFARCTION
     Route: 048
     Dates: start: 20070602
  9. PREDONINE [Concomitant]
     Indication: RHEUMATOID ARTHRITIS
     Route: 048
     Dates: end: 20070913

REACTIONS (2)
  - LIVER DISORDER [None]
  - RECTAL CANCER [None]
